FAERS Safety Report 10245102 (Version 1)
Quarter: 2014Q2

REPORT INFORMATION
  Report Type: Report from Study
  Country: US (occurrence: US)
  Receive Date: 20140618
  Receipt Date: 20140618
  Transmission Date: 20141212
  Serious: Yes (Other)
  Sender: FDA-Public Use
  Company Number: US-B.I. PHARMACEUTICALS,INC./RIDGEFIELD-2014-BI-26640BI

PATIENT
  Sex: Male

DRUGS (3)
  1. GILOTRIF [Suspect]
     Indication: NON-SMALL CELL LUNG CANCER METASTATIC
     Dosage: 30 MG
     Route: 048
     Dates: start: 20140520
  2. GILOTRIF [Suspect]
     Dosage: 30 MG
     Route: 048
     Dates: start: 20140531
  3. GILOTRIF [Suspect]
     Dosage: 30 MG
     Route: 048
     Dates: start: 20140610, end: 20140612

REACTIONS (3)
  - Haemoptysis [Unknown]
  - Haematochezia [Not Recovered/Not Resolved]
  - Haematemesis [Not Recovered/Not Resolved]
